FAERS Safety Report 5683244-0 (Version None)
Quarter: 2008Q1

REPORT INFORMATION
  Report Type: 
  Country: None (occurrence: None)
  Receive Date: 20080326
  Receipt Date: 20080317
  Transmission Date: 20080703
  Serious: Yes (Life-Threatening, Hospitalization)
  Sender: FDA-Public Use
  Company Number: 2008S1000673

PATIENT
  Age: 51 Year
  Sex: Male
  Weight: 99.7913 kg

DRUGS (17)
  1. PHENYTOIN SODIUM [Suspect]
     Indication: CONVULSION
     Dosage: 600 MG; DAILY; ORAL; 1200 MG; X1; ORAL; 700 MG; AT BEDTIME; ORAL
     Route: 048
     Dates: start: 20080113, end: 20080113
  2. PHENYTOIN SODIUM [Suspect]
     Indication: CONVULSION
     Dosage: 600 MG; DAILY; ORAL; 1200 MG; X1; ORAL; 700 MG; AT BEDTIME; ORAL
     Route: 048
     Dates: start: 20050901
  3. PHENYTOIN SODIUM [Suspect]
     Indication: CONVULSION
     Dosage: 600 MG; DAILY; ORAL; 1200 MG; X1; ORAL; 700 MG; AT BEDTIME; ORAL
     Route: 048
     Dates: start: 20080101
  4. IBUPROFEN [Suspect]
     Dosage: 400 MG; DAILY; ORAL
     Route: 048
     Dates: start: 20080101, end: 20080114
  5. OXYCODONE HCL [Concomitant]
  6. FEXOFENADINE [Concomitant]
  7. CYCLOBENZAPRINE HCL [Concomitant]
  8. MUCINEX [Concomitant]
  9. TYLENOL W/ CODEINE NO. 3 [Concomitant]
  10. ATORVASTATIN [Concomitant]
  11. CLARINEX [Concomitant]
  12. PANTOPRAZOLE SODIUM [Concomitant]
  13. TIZANIDINE HCL [Concomitant]
  14. MULTI-VITAMIN [Concomitant]
  15. NEURONTIN [Concomitant]
  16. CELEBREX [Concomitant]
  17. ALPRAZOLAM [Concomitant]

REACTIONS (7)
  - DRUG INTERACTION [None]
  - DRUG LEVEL DECREASED [None]
  - GRAND MAL CONVULSION [None]
  - MUSCULAR WEAKNESS [None]
  - PARALYSIS [None]
  - SURGERY [None]
  - WEIGHT BEARING DIFFICULTY [None]
